FAERS Safety Report 21384828 (Version 2)
Quarter: 2022Q4

REPORT INFORMATION
  Report Type: Other
  Country: GB (occurrence: GB)
  Receive Date: 20220928
  Receipt Date: 20221004
  Transmission Date: 20230112
  Serious: Yes (Other)
  Sender: FDA-Public Use
  Company Number: GB-MACLEODS PHARMACEUTICALS US LTD-MAC2022037377

PATIENT

DRUGS (1)
  1. TAMSULOSIN [Suspect]
     Active Substance: TAMSULOSIN
     Indication: Product used for unknown indication
     Dosage: UNK, MODIFIED-RELEASE CAPSULE, HARD
     Route: 065

REACTIONS (4)
  - Urinary retention [Unknown]
  - Nocturia [Unknown]
  - Dysuria [Unknown]
  - Micturition urgency [Unknown]
